FAERS Safety Report 19656273 (Version 1)
Quarter: 2021Q3

REPORT INFORMATION
  Report Type: Spontaneous
  Country: US (occurrence: US)
  Receive Date: 20210804
  Receipt Date: 20210804
  Transmission Date: 20211014
  Serious: Yes (Life-Threatening, Hospitalization, Other)
  Sender: FDA-Public Use
  Company Number: US-PFIZER INC-202100940508

PATIENT
  Age: 65 Year
  Sex: Male

DRUGS (2)
  1. HEPARIN SODIUM. [Suspect]
     Active Substance: HEPARIN SODIUM
     Dosage: 500 U/H
  2. HEPARIN SODIUM. [Suspect]
     Active Substance: HEPARIN SODIUM
     Indication: CARDIOPULMONARY BYPASS
     Dosage: 52,000 U OF UFH

REACTIONS (2)
  - Heparin-induced thrombocytopenia [Recovered/Resolved]
  - Femoral artery embolism [Recovering/Resolving]
